FAERS Safety Report 14618984 (Version 2)
Quarter: 2018Q1

REPORT INFORMATION
  Report Type: Spontaneous
  Country: CZ (occurrence: CZ)
  Receive Date: 20180309
  Receipt Date: 20180315
  Transmission Date: 20180509
  Serious: Yes (Hospitalization, Other)
  Sender: FDA-Public Use
  Company Number: CZ-IPSEN BIOPHARMACEUTICALS, INC.-2018-03736

PATIENT
  Age: 68 Year
  Sex: Male
  Weight: 81 kg

DRUGS (7)
  1. LEUCOVORIN. [Suspect]
     Active Substance: LEUCOVORIN
     Indication: COLORECTAL CANCER METASTATIC
     Dosage: 700 MG
     Route: 041
     Dates: start: 20150529, end: 20150529
  2. FLUOROURACIL. [Suspect]
     Active Substance: FLUOROURACIL
     Indication: COLORECTAL CANCER METASTATIC
     Dosage: 760 MG
     Route: 040
     Dates: start: 20150529, end: 20150529
  3. QUAMATEL [Concomitant]
     Active Substance: FAMOTIDINE
     Dates: start: 20150529, end: 20150529
  4. FLUOROURACIL. [Suspect]
     Active Substance: FLUOROURACIL
     Dosage: 4680 MG
     Route: 041
     Dates: start: 20150529, end: 20150529
  5. IRINOTECAN LIPOSOME [Suspect]
     Active Substance: IRINOTECAN
     Indication: OFF LABEL USE
  6. IRINOTECAN LIPOSOME [Suspect]
     Active Substance: IRINOTECAN
     Indication: COLORECTAL CANCER METASTATIC
     Dosage: 350 MG
     Route: 041
     Dates: start: 20150529, end: 20150529
  7. ZALTRAP [Suspect]
     Active Substance: ZIV-AFLIBERCEPT
     Indication: COLORECTAL CANCER METASTATIC
     Dosage: 324 MG
     Route: 041
     Dates: start: 20150529, end: 20150529

REACTIONS (5)
  - Off label use [Unknown]
  - Stomatitis [Recovered/Resolved]
  - Febrile neutropenia [Recovered/Resolved]
  - Blood creatinine increased [Recovered/Resolved]
  - Thrombocytopenia [Recovered/Resolved]

NARRATIVE: CASE EVENT DATE: 20150610
